FAERS Safety Report 7394624-X (Version None)
Quarter: 2011Q1

REPORT INFORMATION
  Report Type: 
  Country: None (occurrence: None)
  Receive Date: 20110324
  Receipt Date: 20110318
  Transmission Date: 20110831
  Serious: Yes (Life-Threatening)
  Sender: FDA-Public Use
  Company Number: 2011SP007342

PATIENT
  Age: 10 Month
  Sex: Male
  Weight: 10 kg

DRUGS (1)
  1. ESMERON (ROCURONIUM BROMIDE /01245702/) [Suspect]
     Indication: BRONCHOSCOPY
     Dosage: 0.3 MG/KG; ONCE; IV
     Route: 042
     Dates: start: 20110208, end: 20110208

REACTIONS (1)
  - NEUROMUSCULAR BLOCK PROLONGED [None]
